FAERS Safety Report 19751117 (Version 1)
Quarter: 2021Q3

REPORT INFORMATION
  Report Type: Spontaneous
  Country: US (occurrence: US)
  Receive Date: 20210826
  Receipt Date: 20210826
  Transmission Date: 20211014
  Serious: Yes (Other)
  Sender: FDA-Public Use
  Company Number: US-SA-2021SA279604

PATIENT
  Age: 23 Year
  Sex: Male

DRUGS (1)
  1. ZANTAC [Suspect]
     Active Substance: RANITIDINE HYDROCHLORIDE
     Indication: GASTROOESOPHAGEAL REFLUX DISEASE
     Dosage: 75 MG, QW
     Dates: start: 201601, end: 201905

REACTIONS (6)
  - Medulloblastoma [Unknown]
  - Speech disorder [Unknown]
  - Coordination abnormal [Unknown]
  - Surgery [Unknown]
  - Brain neoplasm malignant [Unknown]
  - Gait inability [Unknown]

NARRATIVE: CASE EVENT DATE: 20190401
